FAERS Safety Report 14766102 (Version 4)
Quarter: 2018Q4

REPORT INFORMATION
  Report Type: Report from Study
  Country: CH (occurrence: CH)
  Receive Date: 20180416
  Receipt Date: 20181228
  Transmission Date: 20190204
  Serious: Yes (Hospitalization, Other)
  Sender: FDA-Public Use
  Company Number: CH-GILEAD-2018-0331133

PATIENT
  Age: 56 Year
  Sex: Male
  Weight: 89 kg

DRUGS (4)
  1. LEDIPASVIR/SOFOSBUVIR [Suspect]
     Active Substance: LEDIPASVIR\SOFOSBUVIR
     Indication: CHRONIC HEPATITIS C
     Dosage: UNK
     Route: 065
     Dates: start: 201505, end: 201508
  2. RIBAVIRIN. [Suspect]
     Active Substance: RIBAVIRIN
     Indication: CHRONIC HEPATITIS C
     Dosage: UNK
     Route: 065
     Dates: start: 201505, end: 201508
  3. DORMICUM                           /00036201/ [Concomitant]
     Active Substance: NITRAZEPAM
     Route: 048
  4. ZEPATIER [Concomitant]
     Active Substance: ELBASVIR\GRAZOPREVIR

REACTIONS (10)
  - Peritonitis bacterial [Unknown]
  - Liver transplant [Recovered/Resolved]
  - Hepatitis C [Not Recovered/Not Resolved]
  - Treatment failure [Not Recovered/Not Resolved]
  - Hepatocellular carcinoma [Unknown]
  - Hepatic encephalopathy [Unknown]
  - Ascites [Unknown]
  - Portal hypertensive gastropathy [Unknown]
  - Upper gastrointestinal haemorrhage [Unknown]
  - Off label use [Recovered/Resolved]

NARRATIVE: CASE EVENT DATE: 201505
